FAERS Safety Report 6146445-3 (Version None)
Quarter: 2009Q2

REPORT INFORMATION
  Report Type: 
  Country: None (occurrence: None)
  Receive Date: 20090407
  Receipt Date: 20090330
  Transmission Date: 20091009
  Serious: Yes (Other)
  Sender: FDA-Public Use
  Company Number: A0763604A

PATIENT
  Age: 79 Year
  Sex: Female

DRUGS (4)
  1. ADVAIR HFA [Suspect]
     Indication: EMPHYSEMA
     Dosage: 1PUFF TWICE PER DAY
     Route: 055
     Dates: start: 20080101
  2. EVISTA [Concomitant]
  3. LOVASTATIN [Concomitant]
  4. COUMADIN [Concomitant]

REACTIONS (4)
  - DYSPHONIA [None]
  - LARYNGEAL POLYP [None]
  - LARYNX IRRITATION [None]
  - MEDICATION ERROR [None]
